FAERS Safety Report 13820650 (Version 1)
Quarter: 2017Q3

REPORT INFORMATION
  Report Type: Spontaneous
  Country: US (occurrence: US)
  Receive Date: 20170801
  Receipt Date: 20170801
  Transmission Date: 20171127
  Serious: No
  Sender: FDA-Public Use
  Company Number: US-TEVA-777524ACC

PATIENT
  Sex: Male

DRUGS (1)
  1. EQ NICOTINE GUM (C2 NICORETTE) [Suspect]
     Active Substance: NICOTINE
     Route: 065
     Dates: start: 20170520

REACTIONS (1)
  - Oropharyngeal pain [Unknown]
